FAERS Safety Report 4732597-6 (Version None)
Quarter: 2005Q3

REPORT INFORMATION
  Report Type: 
  Country: None (occurrence: None)
  Receive Date: 20050803
  Receipt Date: 20050722
  Transmission Date: 20060218
  Serious: Yes (Hospitalization)
  Sender: FDA-Public Use
  Company Number: US-JNJFOC-20050704980

PATIENT
  Sex: Female

DRUGS (25)
  1. INFLIXIMAB [Suspect]
     Indication: RHEUMATOID ARTHRITIS
     Route: 042
  2. PREDNISONE [Concomitant]
  3. HYDROCHLOROTHIAZIDE [Concomitant]
  4. QUININE SULFATE [Concomitant]
  5. METFORMIN HCL [Concomitant]
  6. FOSAMAX [Concomitant]
  7. ZOCOR [Concomitant]
  8. SINGULAIR [Concomitant]
  9. ADVAIR DISKUS 100/50 [Concomitant]
  10. ADVAIR DISKUS 100/50 [Concomitant]
  11. DARVOCET-N 100 [Concomitant]
  12. DARVOCET-N 100 [Concomitant]
  13. VALTREX [Concomitant]
  14. ZYRTEC [Concomitant]
  15. CALCIUM GLUCONATE [Concomitant]
  16. ASPIRIN [Concomitant]
  17. FOLIC ACID [Concomitant]
  18. VITAMIN B COMPLEX CAP [Concomitant]
  19. VITAMIN B COMPLEX CAP [Concomitant]
  20. VITAMIN B COMPLEX CAP [Concomitant]
  21. VITAMIN B COMPLEX CAP [Concomitant]
  22. VITAMIN E [Concomitant]
  23. ESTER C [Concomitant]
  24. OSTEO BIFLEX [Concomitant]
  25. OSTEO BIFLEX [Concomitant]

REACTIONS (1)
  - CHRONIC OBSTRUCTIVE PULMONARY DISEASE [None]
